FAERS Safety Report 4401095-1 (Version None)
Quarter: 2004Q3

REPORT INFORMATION
  Report Type: 
  Country: None (occurrence: None)
  Receive Date: 20040907
  Receipt Date: 20031029
  Transmission Date: 20050211
  Serious: No
  Sender: FDA-Public Use
  Company Number: US-BRISTOL-MYERS SQUIBB COMPANY-12421350

PATIENT
  Age: 71 Year
  Sex: Female
  Weight: 84 kg

DRUGS (8)
  1. COUMADIN [Suspect]
     Indication: TRANSIENT ISCHAEMIC ATTACK
     Dosage: DOSING : ONE 5 MG TAB DAILY FOR 1 DAY AND ONE 2.5 MG TAB DAILY FOR 6 DAYS.
     Route: 048
     Dates: start: 20030910
  2. AVAPRO [Concomitant]
  3. TENORMIN [Concomitant]
  4. NEXIUM [Concomitant]
  5. ASPIRIN [Concomitant]
  6. ZETIA [Concomitant]
  7. TRICOR [Concomitant]
  8. SYNTHROID [Concomitant]

REACTIONS (1)
  - MYALGIA [None]
